FAERS Safety Report 11397659 (Version 1)
Quarter: 2015Q3

REPORT INFORMATION
  Report Type: Spontaneous
  Country: DE (occurrence: DE)
  Receive Date: 20150819
  Receipt Date: 20150819
  Transmission Date: 20151125
  Serious: Yes (Hospitalization, Other)
  Sender: FDA-Public Use
  Company Number: DE-ACTELION-A-US2015-122622

PATIENT
  Age: 77 Year
  Sex: Male
  Weight: 90 kg

DRUGS (4)
  1. VENTAVIS [Suspect]
     Active Substance: ILOPROST
     Indication: PRODUCT USED FOR UNKNOWN INDICATION
     Route: 055
  2. RIOCIGUAT [Suspect]
     Active Substance: RIOCIGUAT
     Indication: PULMONARY HYPERTENSION
     Dosage: UNK
     Route: 065
     Dates: start: 2014, end: 2015
  3. MARCUMAR [Concomitant]
     Active Substance: PHENPROCOUMON
  4. OXYGEN. [Concomitant]
     Active Substance: OXYGEN

REACTIONS (22)
  - Staphylococcal infection [Unknown]
  - Pyrexia [Unknown]
  - Erythema [Unknown]
  - Venous thrombosis limb [Unknown]
  - Anuria [Unknown]
  - Headache [Unknown]
  - Ascites [Unknown]
  - Pancreatic steatosis [Unknown]
  - Joint swelling [Unknown]
  - Splenomegaly [Unknown]
  - Acute kidney injury [Unknown]
  - Thrombophlebitis [Unknown]
  - Sepsis [Unknown]
  - Skin warm [Unknown]
  - Cardiorenal syndrome [Unknown]
  - Pleural effusion [Unknown]
  - Hepatic congestion [Unknown]
  - Inflammatory marker increased [Unknown]
  - Renal function test abnormal [Unknown]
  - Hypertension [Unknown]
  - Right ventricular failure [Unknown]
  - Cor pulmonale chronic [Unknown]

NARRATIVE: CASE EVENT DATE: 20150618
